FAERS Safety Report 9426900 (Version 1)
Quarter: 2013Q3

REPORT INFORMATION
  Report Type: Spontaneous
  Country: JP (occurrence: JP)
  Receive Date: 20130730
  Receipt Date: 20130730
  Transmission Date: 20140515
  Serious: Yes (Other)
  Sender: FDA-Public Use
  Company Number: JP-ASTELLAS-2013JP007914

PATIENT
  Age: 68 Year
  Sex: Female

DRUGS (3)
  1. TACROLIMUS [Suspect]
     Indication: MYASTHENIA GRAVIS
     Route: 065
  2. CORTICOSTEROID NOS [Concomitant]
     Indication: MYASTHENIA GRAVIS
     Route: 065
  3. ANTICHOLINESTERASES [Concomitant]
     Indication: MYASTHENIA GRAVIS
     Route: 065

REACTIONS (2)
  - Drug ineffective [Unknown]
  - Myasthenia gravis [Unknown]
